FAERS Safety Report 7489409-X (Version None)
Quarter: 2011Q2

REPORT INFORMATION
  Report Type: 
  Country: None (occurrence: None)
  Receive Date: 20110518
  Receipt Date: 20110512
  Transmission Date: 20111010
  Serious: Yes (Other)
  Sender: FDA-Public Use
  Company Number: US-MERCK-1105USA01194

PATIENT
  Age: 83 Year
  Sex: Female

DRUGS (1)
  1. FOSAMAX [Suspect]
     Indication: BONE LOSS
     Route: 048
     Dates: end: 20110317

REACTIONS (4)
  - TOOTH INFECTION [None]
  - OSTEOMYELITIS [None]
  - DENTAL FISTULA [None]
  - TOOTH ABSCESS [None]
